FAERS Safety Report 20344664 (Version 3)
Quarter: 2022Q1

REPORT INFORMATION
  Report Type: Report from Study
  Country: BR (occurrence: BR)
  Receive Date: 20220118
  Receipt Date: 20220316
  Transmission Date: 20220423
  Serious: Yes (Other)
  Sender: FDA-Public Use
  Company Number: BR-NOVARTISPH-NVSC2021BR276446

PATIENT
  Age: 61 Year
  Sex: Female

DRUGS (3)
  1. KISQALI [Suspect]
     Active Substance: RIBOCICLIB
     Indication: Product used for unknown indication
     Dosage: UNK
     Route: 065
  2. PIQRAY [Suspect]
     Active Substance: ALPELISIB
     Indication: Breast cancer female
     Dosage: UNK
     Route: 065
     Dates: start: 20211122, end: 20220309
  3. PIQRAY [Suspect]
     Active Substance: ALPELISIB
     Indication: Breast neoplasm

REACTIONS (17)
  - Diabetes mellitus [Not Recovered/Not Resolved]
  - Blood glucose increased [Unknown]
  - Eating disorder [Unknown]
  - Cartilage injury [Unknown]
  - Arthralgia [Unknown]
  - Cough [Recovered/Resolved]
  - Ear pain [Recovered/Resolved]
  - Sneezing [Recovered/Resolved]
  - Pain [Recovered/Resolved]
  - Oropharyngeal pain [Recovered/Resolved]
  - Fatigue [Recovered/Resolved]
  - Headache [Recovered/Resolved]
  - Nausea [Unknown]
  - Pyrexia [Recovered/Resolved]
  - COVID-19 [Recovered/Resolved]
  - Food aversion [Unknown]
  - Malaise [Unknown]

NARRATIVE: CASE EVENT DATE: 20211201
